FAERS Safety Report 9345495 (Version 2)
Quarter: 2013Q4

REPORT INFORMATION
  Report Type: Spontaneous
  Country: GB (occurrence: GB)
  Receive Date: 20130613
  Receipt Date: 20131025
  Transmission Date: 20140711
  Serious: Yes (Hospitalization, Other)
  Sender: FDA-Public Use
  Company Number: GB-JNJFOC-20110710513

PATIENT
  Age: 73 Year
  Sex: Male
  Weight: 89 kg

DRUGS (5)
  1. XARELTO [Suspect]
     Indication: THROMBOSIS PROPHYLAXIS
     Route: 048
     Dates: start: 20090619, end: 20090622
  2. FERROUS SULPHATE [Concomitant]
     Indication: ANAEMIA POSTOPERATIVE
     Route: 048
     Dates: start: 20090622
  3. FINASTERIDE [Concomitant]
     Indication: BENIGN PROSTATIC HYPERPLASIA
     Route: 048
  4. LACTULOSE [Concomitant]
     Indication: CONSTIPATION
     Route: 048
     Dates: start: 20090620
  5. VESICARE [Concomitant]
     Indication: BENIGN PROSTATIC HYPERPLASIA
     Route: 048

REACTIONS (2)
  - Brain contusion [Recovered/Resolved]
  - Cerebral haemorrhage [Recovered/Resolved]
